FAERS Safety Report 15152052 (Version 1)
Quarter: 2018Q3

REPORT INFORMATION
  Report Type: Spontaneous
  Country: US (occurrence: US)
  Receive Date: 20180717
  Receipt Date: 20180717
  Transmission Date: 20181010
  Serious: Yes (Other)
  Sender: FDA-Public Use
  Company Number: US-BEH-2018092700

PATIENT
  Age: 74 Year
  Sex: Female
  Weight: 95.24 kg

DRUGS (16)
  1. HIZENTRA [Suspect]
     Active Substance: HUMAN IMMUNOGLOBULIN G
     Indication: IMMUNODEFICIENCY COMMON VARIABLE
     Dosage: UNK
     Route: 058
  2. HIZENTRA [Suspect]
     Active Substance: HUMAN IMMUNOGLOBULIN G
     Dosage: 20 G, QW
     Route: 058
     Dates: start: 20100614
  3. VITAMIN D                          /00107901/ [Concomitant]
     Active Substance: ERGOCALCIFEROL
  4. DIPHENHYDRAMINE. [Concomitant]
     Active Substance: DIPHENHYDRAMINE
  5. INVOKANA [Concomitant]
     Active Substance: CANAGLIFLOZIN
  6. ASPIRIN. [Concomitant]
     Active Substance: ASPIRIN
  7. HUMALOG [Concomitant]
     Active Substance: INSULIN LISPRO
  8. DEXILANT [Concomitant]
     Active Substance: DEXLANSOPRAZOLE
  9. DIOVAN [Concomitant]
     Active Substance: VALSARTAN
  10. TOVIAZ [Concomitant]
     Active Substance: FESOTERODINE FUMARATE
  11. METFORMIN [Concomitant]
     Active Substance: METFORMIN HYDROCHLORIDE
  12. LANTUS [Concomitant]
     Active Substance: INSULIN GLARGINE
  13. CALCIUM CITRATE [Concomitant]
     Active Substance: CALCIUM CITRATE
  14. EPINEPHRINE. [Concomitant]
     Active Substance: EPINEPHRINE
  15. LIPITOR [Concomitant]
     Active Substance: ATORVASTATIN CALCIUM
  16. PROZAC [Concomitant]
     Active Substance: FLUOXETINE HYDROCHLORIDE

REACTIONS (2)
  - Aneurysm ruptured [Unknown]
  - Epistaxis [Unknown]

NARRATIVE: CASE EVENT DATE: 2018
